FAERS Safety Report 6017632-X (Version None)
Quarter: 2008Q4

REPORT INFORMATION
  Report Type: 
  Country: None (occurrence: None)
  Receive Date: 20081223
  Receipt Date: 20081222
  Transmission Date: 20090506
  Serious: Yes (Death, Hospitalization)
  Sender: FDA-Public Use
  Company Number: US-WYE-H07379208

PATIENT
  Age: 56 Year
  Sex: Female
  Weight: 112 kg

DRUGS (3)
  1. GEMTUZUMAB OZOGAMICIN [Suspect]
     Indication: ACUTE MYELOID LEUKAEMIA
     Dosage: 6MG/M^2 OVER 2 HOURS (TOTAL DOSE ADMINISTERED THIS COURSE=13.5MG)
     Route: 042
     Dates: start: 20081015, end: 20081015
  2. DAUNORUBICIN [Suspect]
     Indication: ACUTE MYELOID LEUKAEMIA
     Dosage: 45MG/M^2 ON DAYS 1-3 (TOTAL DOSE ADMINISTERED THIS COURSE=303MG)
     Route: 042
     Dates: start: 20081012, end: 20081014
  3. CYTARABINE [Suspect]
     Indication: ACUTE MYELOID LEUKAEMIA
     Dosage: 100MG/M^2 DAYS 1-7 (TOTAL DOSE ADMINISTERED THIS COURSE=1575MG)
     Route: 042
     Dates: start: 20081012, end: 20081018

REACTIONS (1)
  - CLOSTRIDIUM DIFFICILE COLITIS [None]
